FAERS Safety Report 6969690-3 (Version None)
Quarter: 2010Q3

REPORT INFORMATION
  Report Type: 
  Country: None (occurrence: None)
  Receive Date: 20100908
  Receipt Date: 20100831
  Transmission Date: 20110219
  Serious: Yes (Hospitalization, Disabling)
  Sender: FDA-Public Use
  Company Number: UA-BAYER-201036020GPV

PATIENT
  Age: 38 Year
  Sex: Female

DRUGS (1)
  1. MIRENA [Suspect]
     Indication: ADENOMYOSIS
     Route: 015
     Dates: start: 20100101

REACTIONS (1)
  - ISCHAEMIC STROKE [None]
